FAERS Safety Report 19488369 (Version 3)
Quarter: 2022Q1

REPORT INFORMATION
  Report Type: Spontaneous
  Country: BE (occurrence: BE)
  Receive Date: 20210702
  Receipt Date: 20220331
  Transmission Date: 20220423
  Serious: Yes (Death, Hospitalization, Other)
  Sender: FDA-Public Use
  Company Number: BE-PFIZER INC-2021789703

PATIENT
  Age: 51 Year
  Sex: Female

DRUGS (3)
  1. CISPLATIN [Suspect]
     Active Substance: CISPLATIN
     Indication: Thymoma
     Dosage: 6 CYCLICAL (TOTAL DOSE TO PRIMARY EVENT)
  2. ADRIAMYCIN [Suspect]
     Active Substance: DOXORUBICIN HYDROCHLORIDE
     Indication: Thymoma
     Dosage: 6 CYCLICAL (TOTAL DOSE TO PRIMARY EVENT)
  3. CYCLOPHOSPHAMIDE [Suspect]
     Active Substance: CYCLOPHOSPHAMIDE
     Indication: Thymoma
     Dosage: 6 CYCLICAL (TOTAL DOSE TO PRIMARY EVENT)

REACTIONS (5)
  - Febrile neutropenia [Not Recovered/Not Resolved]
  - Systemic candida [Fatal]
  - Serratia infection [Unknown]
  - Herpes zoster [Unknown]
  - Cerebral haemorrhage [Unknown]
